FAERS Safety Report 5118356-3 (Version None)
Quarter: 2006Q4

REPORT INFORMATION
  Report Type: 
  Country: None (occurrence: None)
  Receive Date: 20061002
  Receipt Date: 20060926
  Transmission Date: 20070319
  Serious: Yes (Death)
  Sender: FDA-Public Use
  Company Number: FR-AVENTIS-200613322FR

PATIENT
  Age: 60 Year
  Sex: Female

DRUGS (6)
  1. TAXOTERE [Suspect]
     Indication: BREAST CANCER
     Route: 042
  2. ANTIEMETICS AND ANTINAUSEANTS [Concomitant]
     Dates: start: 20060901
  3. KYTRIL [Concomitant]
     Dates: start: 20060901
  4. PRIMPERAN TAB [Concomitant]
     Dates: start: 20060901
  5. DI-ANTALVIC [Concomitant]
     Dates: start: 20060901
  6. DEXAMETHASONE TAB [Concomitant]
     Dates: start: 20060905, end: 20060907

REACTIONS (5)
  - DIARRHOEA [None]
  - HAEMOGLOBIN DECREASED [None]
  - PLATELET COUNT INCREASED [None]
  - SUDDEN DEATH [None]
  - VOMITING [None]
